FAERS Safety Report 4320309-X (Version None)
Quarter: 2004Q1

REPORT INFORMATION
  Report Type: 
  Country: None (occurrence: None)
  Receive Date: 20040317
  Receipt Date: 20040309
  Transmission Date: 20041129
  Serious: No
  Sender: FDA-Public Use
  Company Number: 2004GB00614

PATIENT
  Sex: Male

DRUGS (2)
  1. ENTOCORT EC [Suspect]
     Dosage: 9 MG DOSE VARIES
     Dates: start: 19950101
  2. AZATHIOPRINE [Suspect]
     Dosage: 150 MG DAILY PO
     Route: 048
     Dates: start: 19950101

REACTIONS (1)
  - GYNAECOMASTIA [None]
